FAERS Safety Report 6985325-8 (Version None)
Quarter: 2010Q3

REPORT INFORMATION
  Report Type: 
  Country: None (occurrence: None)
  Receive Date: 20100915
  Receipt Date: 20100825
  Transmission Date: 20110219
  Serious: No
  Sender: FDA-Public Use
  Company Number: US-PFIZER INC-2010107885

PATIENT
  Sex: Female
  Weight: 56.236 kg

DRUGS (9)
  1. FLUCONAZOLE [Suspect]
     Indication: CANDIDIASIS
     Dosage: 200 MG, DAILY
     Route: 048
     Dates: start: 20100810, end: 20100801
  2. PREDNISONE [Concomitant]
     Dosage: 2.5MG DAILY
     Route: 048
  3. ARFORMOTEROL TARTRATE [Concomitant]
     Indication: CHRONIC OBSTRUCTIVE PULMONARY DISEASE
  4. PULMICORT [Concomitant]
     Indication: CHRONIC OBSTRUCTIVE PULMONARY DISEASE
  5. IMDUR [Concomitant]
     Dosage: 40 MG, 2X/DAY
  6. SIMVASTATIN [Concomitant]
  7. WELLBUTRIN [Concomitant]
  8. OMEPRAZOLE [Concomitant]
     Dosage: 40 MG, 2X/DAY
  9. SPIRIVA [Concomitant]

REACTIONS (1)
  - ALOPECIA [None]
